FAERS Safety Report 6592723-3 (Version None)
Quarter: 2010Q1

REPORT INFORMATION
  Report Type: 
  Country: None (occurrence: None)
  Receive Date: 20100212
  Receipt Date: 20100127
  Transmission Date: 20100710
  Serious: Yes (Other)
  Sender: FDA-Public Use
  Company Number: 005717

PATIENT
  Sex: Female

DRUGS (2)
  1. LACOSAMIDE [Suspect]
     Indication: CONVULSION
     Dosage: 50 MG BID, 100 MG BID
     Dates: start: 20100113, end: 20100119
  2. LACOSAMIDE [Suspect]
     Indication: CONVULSION
     Dosage: 50 MG BID, 100 MG BID
     Dates: start: 20100120

REACTIONS (2)
  - CONVULSION [None]
  - PSYCHOMOTOR RETARDATION [None]
